FAERS Safety Report 20913170 (Version 1)
Quarter: 2022Q2

REPORT INFORMATION
  Report Type: Spontaneous
  Country: US (occurrence: US)
  Receive Date: 20220603
  Receipt Date: 20220603
  Transmission Date: 20220720
  Serious: No
  Sender: FDA-Public Use
  Company Number: US-BRAINTREE LABORATORIES, INC.-2022BTE00197

PATIENT
  Age: 52 Year
  Sex: Male
  Weight: 83.9 kg

DRUGS (1)
  1. SUTAB [Suspect]
     Active Substance: MAGNESIUM SULFATE\POTASSIUM CHLORIDE\SODIUM SULFATE
     Indication: Colonoscopy
     Dosage: 2 X 12 TABLETS, 1X
     Route: 048
     Dates: start: 20220307, end: 20220308

REACTIONS (8)
  - Dizziness [Recovered/Resolved]
  - Presyncope [Recovered/Resolved]
  - Muscle strain [Recovering/Resolving]
  - Mobility decreased [Recovered/Resolved]
  - Retching [Recovering/Resolving]
  - Haematemesis [Recovering/Resolving]
  - Vomiting projectile [Recovering/Resolving]
  - Dyspnoea [Recovered/Resolved]

NARRATIVE: CASE EVENT DATE: 20220308
